FAERS Safety Report 8417641-7 (Version None)
Quarter: 2012Q2

REPORT INFORMATION
  Report Type: 
  Country: None (occurrence: None)
  Receive Date: 20120606
  Receipt Date: 20120529
  Transmission Date: 20120825
  Serious: Yes (Death, Other)
  Sender: FDA-Public Use
  Company Number: US-RB-040680-12

PATIENT
  Age: 61 Year
  Sex: Male

DRUGS (4)
  1. LAMOTRIGINE [Concomitant]
     Indication: DEPRESSION
     Dosage: DOSING DETAILS UNKNOWN
     Route: 065
     Dates: end: 20120512
  2. SUBOXONE [Suspect]
     Route: 060
     Dates: start: 20091201, end: 20100627
  3. SUBOXONE [Suspect]
     Route: 060
     Dates: start: 20110101, end: 20120512
  4. SUBOXONE [Suspect]
     Indication: DRUG DEPENDENCE
     Route: 060
     Dates: start: 20100628, end: 20110101

REACTIONS (5)
  - PAIN [None]
  - BONE NEOPLASM MALIGNANT [None]
  - HAEMATURIA [None]
  - THERAPEUTIC RESPONSE UNEXPECTED [None]
  - BLADDER CANCER [None]
